FAERS Safety Report 5955757-5 (Version None)
Quarter: 2008Q4

REPORT INFORMATION
  Report Type: 
  Country: None (occurrence: None)
  Receive Date: 20081117
  Receipt Date: 20081104
  Transmission Date: 20090506
  Serious: Yes (Hospitalization)
  Sender: FDA-Public Use
  Company Number: GB-B.I. PHARMACEUTICALS,INC./RIDGEFIELD-2008-UK-01717UK

PATIENT
  Age: 22 Year
  Sex: Female

DRUGS (2)
  1. VIRAMUNE [Suspect]
     Indication: HIV INFECTION
     Dosage: 200MG
  2. KIVEXA [Concomitant]

REACTIONS (2)
  - BLOOD AMYLASE INCREASED [None]
  - RASH [None]
